FAERS Safety Report 11363202 (Version 2)
Quarter: 2015Q3

REPORT INFORMATION
  Report Type: Report from Study
  Country: US (occurrence: US)
  Receive Date: 20150811
  Receipt Date: 20150924
  Transmission Date: 20151125
  Serious: Yes (Other)
  Sender: FDA-Public Use
  Company Number: US-ABBVIE-15K-163-1439537-00

PATIENT
  Age: 67 Year
  Sex: Female
  Weight: 71.73 kg

DRUGS (15)
  1. IRON [Concomitant]
     Active Substance: IRON
     Indication: PRODUCT USED FOR UNKNOWN INDICATION
  2. KLOR-CON [Concomitant]
     Active Substance: POTASSIUM CHLORIDE
     Indication: PRODUCT USED FOR UNKNOWN INDICATION
  3. SPIRIVA [Concomitant]
     Active Substance: TIOTROPIUM BROMIDE MONOHYDRATE
     Indication: PRODUCT USED FOR UNKNOWN INDICATION
     Dosage: 18 MCG ONE CAPSULE ONCE A DAY
  4. SINGULAIR [Concomitant]
     Active Substance: MONTELUKAST SODIUM
     Indication: PRODUCT USED FOR UNKNOWN INDICATION
     Dosage: ONE TABLET ONCE DAY (IN THE EVENING)
  5. LIPITOR [Concomitant]
     Active Substance: ATORVASTATIN CALCIUM
     Indication: PRODUCT USED FOR UNKNOWN INDICATION
  6. VALIUM [Concomitant]
     Active Substance: DIAZEPAM
     Indication: ANXIETY
  7. FERROUS SULFATE [Concomitant]
     Active Substance: FERROUS SULFATE\FERROUS SULFATE, DRIED
     Indication: PRODUCT USED FOR UNKNOWN INDICATION
     Dosage: ONE TABLET ONCE A DAY
  8. PROZAC [Concomitant]
     Active Substance: FLUOXETINE HYDROCHLORIDE
     Indication: PRODUCT USED FOR UNKNOWN INDICATION
     Dosage: ONE CAPSULE ONCE A DAY
  9. TYLENOL WITH CODEINE [Concomitant]
     Active Substance: ACETAMINOPHEN\CODEINE PHOSPHATE
     Indication: PAIN
     Dosage: 300 MG-30 MG TABLET ONE TABLET EVERY 6 HOURS
  10. FOLIC ACID. [Concomitant]
     Active Substance: FOLIC ACID
     Indication: PRODUCT USED FOR UNKNOWN INDICATION
     Dosage: ONE TABLET TWIE A DAY
  11. HUMIRA [Suspect]
     Active Substance: ADALIMUMAB
     Indication: PSORIASIS
     Route: 065
     Dates: start: 2010
  12. POTASSIUM [Concomitant]
     Active Substance: POTASSIUM
     Indication: PRODUCT USED FOR UNKNOWN INDICATION
  13. AMITRIPTYLINE [Concomitant]
     Active Substance: AMITRIPTYLINE
     Indication: PRODUCT USED FOR UNKNOWN INDICATION
     Dosage: AT BED TIME (ONE TABLET ONCE A DAY)
  14. GABAPENTIN. [Concomitant]
     Active Substance: GABAPENTIN
     Indication: NEURALGIA
     Dosage: ONE TABLET 3 TIMES A DAY
  15. METFORMIN [Concomitant]
     Active Substance: METFORMIN HYDROCHLORIDE
     Indication: PRODUCT USED FOR UNKNOWN INDICATION
     Dosage: ONE TABLET TWO TIMES A DAY

REACTIONS (26)
  - Cardiac failure congestive [Unknown]
  - Bilirubin conjugated increased [Unknown]
  - Red blood cell sedimentation rate increased [Unknown]
  - Albumin globulin ratio decreased [Unknown]
  - Blood bilirubin unconjugated decreased [Unknown]
  - Dysphagia [Recovered/Resolved]
  - Arthralgia [Unknown]
  - Influenza [Unknown]
  - High density lipoprotein decreased [Unknown]
  - Red blood cell count decreased [Unknown]
  - Blood cholesterol decreased [Unknown]
  - Infection transmission via personal contact [Recovered/Resolved]
  - Blood iron decreased [Unknown]
  - Neuropathy peripheral [Unknown]
  - Chronic obstructive pulmonary disease [Unknown]
  - Protein total increased [Unknown]
  - Globulins increased [Unknown]
  - Haemoglobin decreased [Unknown]
  - Pneumonia [Recovered/Resolved]
  - Depression [Unknown]
  - Type 2 diabetes mellitus [Unknown]
  - Haematocrit decreased [Unknown]
  - Transient ischaemic attack [Unknown]
  - Night sweats [Unknown]
  - Anxiety [Unknown]
  - Pneumonia [Recovered/Resolved]

NARRATIVE: CASE EVENT DATE: 2014
